FAERS Safety Report 9773556 (Version 1)
Quarter: 2013Q4

REPORT INFORMATION
  Report Type: Spontaneous
  Country: FR (occurrence: None)
  Receive Date: 20131217
  Receipt Date: 20131217
  Transmission Date: 20140711
  Serious: Yes (Hospitalization, Other)
  Sender: FDA-Public Use
  Company Number: 2013HINLIT0288

PATIENT
  Age: 15 Year
  Sex: Male

DRUGS (3)
  1. LEVETIRACETAM [Suspect]
     Indication: CONVULSION
     Dosage: 2 DIVIDED DOSES
  2. METHOTREXATE [Suspect]
     Indication: ACUTE LYMPHOCYTIC LEUKAEMIA
  3. CLONAZEPAM [Concomitant]

REACTIONS (6)
  - Drug interaction [None]
  - Vomiting [None]
  - Renal failure [None]
  - Drug level increased [None]
  - Toxicity to various agents [None]
  - Hypertension [None]
